FAERS Safety Report 15694474 (Version 1)
Quarter: 2018Q4

REPORT INFORMATION
  Report Type: Spontaneous
  Country: US (occurrence: US)
  Receive Date: 20181126
  Receipt Date: 20181126
  Transmission Date: 20190205
  Serious: Yes (Life-Threatening, Hospitalization)
  Sender: FDA-Public Use
  Company Number: None

PATIENT
  Age: 63 Year
  Sex: Male
  Weight: 76.2 kg

DRUGS (1)
  1. HEPARIN [Suspect]
     Active Substance: HEPARIN SODIUM
     Indication: THROMBOSIS PROPHYLAXIS
     Dosage: ?          OTHER DOSE:5000 UNITS;?
     Route: 058
     Dates: start: 20180716, end: 20180721

REACTIONS (7)
  - Tachycardia [None]
  - Tachypnoea [None]
  - Sepsis [None]
  - Deep vein thrombosis [None]
  - Pulmonary embolism [None]
  - Thrombocytopenia [None]
  - Heparin-induced thrombocytopenia test positive [None]

NARRATIVE: CASE EVENT DATE: 20180721
